FAERS Safety Report 8511802-4 (Version None)
Quarter: 2012Q3

REPORT INFORMATION
  Report Type: 
  Country: None (occurrence: None)
  Receive Date: 20120716
  Receipt Date: 20120712
  Transmission Date: 20120928
  Serious: Yes (Other)
  Sender: FDA-Public Use
  Company Number: US-PFIZER INC-2012169194

PATIENT
  Sex: Male
  Weight: 90.703 kg

DRUGS (5)
  1. NEXIUM [Concomitant]
     Dosage: 40 MG, DAILY
  2. ASCORBIC ACID [Concomitant]
     Dosage: 500 MG, DAILY
  3. CHANTIX [Suspect]
     Indication: SMOKING CESSATION THERAPY
     Dosage: 0.5 MG, DAILY
     Route: 048
     Dates: start: 20120401, end: 20120709
  4. CRESTOR [Concomitant]
     Dosage: 10 MG, DAILY
  5. TRIPLEFLEX [Concomitant]
     Indication: ARTHROPATHY
     Dosage: [GLUCOSAMINE 1500 MG]/ [CHONDROITIN 290MG], DAILY

REACTIONS (7)
  - FRUSTRATION [None]
  - ANGER [None]
  - WITHDRAWAL SYNDROME [None]
  - MENTAL IMPAIRMENT [None]
  - ANXIETY [None]
  - MALAISE [None]
  - FEELING ABNORMAL [None]
